FAERS Safety Report 5035366-5 (Version None)
Quarter: 2006Q2

REPORT INFORMATION
  Report Type: 
  Country: None (occurrence: None)
  Receive Date: 20060519
  Receipt Date: 20060420
  Transmission Date: 20061013
  Serious: No
  Sender: FDA-Public Use
  Company Number: TPA2006A00324

PATIENT
  Age: 54 Year
  Sex: Female
  Weight: 76.6579 kg

DRUGS (7)
  1. ROZEREM [Suspect]
     Indication: INSOMNIA
     Dosage: 8 MG, PER ORAL
     Route: 048
     Dates: start: 20060213, end: 20060214
  2. ENALAPRIL MALEATE [Concomitant]
  3. HYDROCHLOROTHIAZIDE [Concomitant]
  4. LEXAPRO [Concomitant]
  5. PRILOSEC [Concomitant]
  6. KEFLEX [Concomitant]
  7. TETRACYCLINE [Concomitant]

REACTIONS (3)
  - HALLUCINATIONS, MIXED [None]
  - INITIAL INSOMNIA [None]
  - NIGHTMARE [None]
